FAERS Safety Report 7523576-4 (Version None)
Quarter: 2011Q2

REPORT INFORMATION
  Report Type: 
  Country: None (occurrence: None)
  Receive Date: 20110603
  Receipt Date: 20110523
  Transmission Date: 20111010
  Serious: Yes (Death, Other)
  Sender: FDA-Public Use
  Company Number: TR-TEVA-283157ISR

PATIENT
  Age: 74 Year
  Sex: Male

DRUGS (4)
  1. VINCRISTINE [Suspect]
     Indication: ANAPLASTIC LARGE CELL LYMPHOMA T- AND NULL-CELL TYPES
  2. CYCLOPHOSPHAMIDE [Suspect]
     Indication: ANAPLASTIC LARGE CELL LYMPHOMA T- AND NULL-CELL TYPES
  3. PREDNISONE [Suspect]
     Indication: ANAPLASTIC LARGE CELL LYMPHOMA T- AND NULL-CELL TYPES
  4. DOXORUBICIN HCL [Suspect]
     Indication: ANAPLASTIC LARGE CELL LYMPHOMA T- AND NULL-CELL TYPES

REACTIONS (2)
  - FEBRILE NEUTROPENIA [None]
  - SYSTEMIC MYCOSIS [None]
